FAERS Safety Report 18643455 (Version 2)
Quarter: 2021Q1

REPORT INFORMATION
  Report Type: Spontaneous
  Country: DE (occurrence: DE)
  Receive Date: 20201221
  Receipt Date: 20210208
  Transmission Date: 20210419
  Serious: Yes (Other)
  Sender: FDA-Public Use
  Company Number: DE-PFIZER INC-2020496269

PATIENT
  Age: 44 Year
  Sex: Male

DRUGS (1)
  1. METHOTREXATE SODIUM. [Suspect]
     Active Substance: METHOTREXATE SODIUM
     Indication: PSORIATIC ARTHROPATHY
     Dosage: 10 MG, EVERY OTHER WEEK
     Route: 058
     Dates: end: 2015

REACTIONS (4)
  - Product use issue [Unknown]
  - Off label use [Unknown]
  - Intestinal haemorrhage [Unknown]
  - Drug ineffective [Unknown]
